FAERS Safety Report 9815584 (Version 2)
Quarter: 2014Q2

REPORT INFORMATION
  Report Type: Spontaneous
  Country: US (occurrence: US)
  Receive Date: 20140114
  Receipt Date: 20140404
  Transmission Date: 20141212
  Serious: Yes (Hospitalization)
  Sender: FDA-Public Use
  Company Number: US-BAYER-2014-002341

PATIENT
  Age: 37 Year
  Sex: Female
  Weight: 75.74 kg

DRUGS (16)
  1. YAZ [Suspect]
     Indication: CONTRACEPTION
     Dosage: UNK
     Dates: start: 200602, end: 201001
  2. YAZ [Suspect]
     Indication: CONTRACEPTION
     Dosage: UNK
     Dates: start: 200807, end: 200807
  3. YAZ [Suspect]
     Indication: CONTRACEPTION
     Dosage: UNK
     Dates: start: 200912, end: 200912
  4. YAZ [Suspect]
     Indication: CONTRACEPTION
     Dosage: UNK
     Dates: start: 201001, end: 201001
  5. YASMIN [Suspect]
     Indication: CONTRACEPTION
     Dosage: UNK
     Dates: start: 200602, end: 201001
  6. OCELLA [Suspect]
     Indication: CONTRACEPTION
     Dosage: UNK
     Dates: start: 200602, end: 201001
  7. GIANVI [Suspect]
     Indication: CONTRACEPTION
     Dosage: UNK
     Dates: start: 201104, end: 20121227
  8. AZITHROMYCIN [Concomitant]
  9. CLONAZEPAM [Concomitant]
  10. ESCITALOPRAM [Concomitant]
  11. PROMETHAZINE [Concomitant]
  12. CODEINE [Concomitant]
  13. LEXAPRO [Concomitant]
  14. ZOCOR [Concomitant]
  15. CALCIUM D [Concomitant]
  16. CAFFEINE [Concomitant]

REACTIONS (4)
  - Cerebrovascular accident [None]
  - Nervous system disorder [Not Recovered/Not Resolved]
  - Visual impairment [None]
  - Headache [None]
